FAERS Safety Report 9915377 (Version 2)
Quarter: 2014Q1

REPORT INFORMATION
  Report Type: Spontaneous
  Country: US (occurrence: US)
  Receive Date: 20140221
  Receipt Date: 20140305
  Transmission Date: 20141002
  Serious: Yes (Hospitalization)
  Sender: FDA-Public Use
  Company Number: US-BIOGENIDEC-2014BI017004

PATIENT
  Sex: Female

DRUGS (2)
  1. AVONEX [Suspect]
     Indication: MULTIPLE SCLEROSIS
     Route: 030
     Dates: start: 20130227
  2. NORVASC [Concomitant]

REACTIONS (4)
  - Deep vein thrombosis [Recovered/Resolved]
  - Visual impairment [Unknown]
  - Vocal cord disorder [Unknown]
  - Thyroid disorder [Unknown]
